FAERS Safety Report 7908262 (Version 3)
Quarter: 2013Q1

REPORT INFORMATION
  Report Type: Spontaneous
  Country: ES (occurrence: ES)
  Receive Date: 20110421
  Receipt Date: 20130308
  Transmission Date: 20140127
  Serious: Yes (Hospitalization, Other)
  Sender: FDA-Public Use
  Company Number: ES-JNJFOC-20100605564

PATIENT
  Age: 55 Year
  Sex: Female

DRUGS (5)
  1. FENTANYL [Suspect]
     Indication: ANALGESIC THERAPY
     Route: 062
  2. TRAMADOL [Suspect]
     Indication: ANALGESIC THERAPY
     Route: 065
  3. BUPRENORPHINE [Suspect]
     Indication: ANALGESIC THERAPY
     Route: 062
  4. MORPHINE [Suspect]
     Indication: ANALGESIC THERAPY
     Route: 048
  5. OXYCODONE [Suspect]
     Indication: ANALGESIC THERAPY
     Route: 048

REACTIONS (5)
  - Constipation [Recovered/Resolved]
  - Haemorrhoids [Unknown]
  - Intestinal obstruction [Unknown]
  - Adverse event [Unknown]
  - Treatment failure [Recovered/Resolved]
